FAERS Safety Report 25945653 (Version 1)
Quarter: 2025Q4

REPORT INFORMATION
  Report Type: Spontaneous
  Country: MY (occurrence: MY)
  Receive Date: 20251021
  Receipt Date: 20251021
  Transmission Date: 20260117
  Serious: Yes (Hospitalization)
  Sender: MYLAN
  Company Number: MY-MYLANLABS-2025M1088010

PATIENT
  Age: 52 Year
  Sex: Male

DRUGS (3)
  1. ATORVASTATIN [Suspect]
     Active Substance: ATORVASTATIN
     Indication: Low density lipoprotein increased
     Dosage: 40 MILLIGRAM, QD (ONCE DAILY)
     Dates: start: 202411
  2. EZETIMIBE [Suspect]
     Active Substance: EZETIMIBE
     Indication: Low density lipoprotein increased
     Dosage: 10 MILLIGRAM
  3. INCLISIRAN [Concomitant]
     Active Substance: INCLISIRAN
     Dosage: UNK

REACTIONS (5)
  - Coronary artery disease [Unknown]
  - Chest pain [Unknown]
  - Gamma-glutamyltransferase increased [Recovered/Resolved]
  - Blood alkaline phosphatase increased [Recovered/Resolved]
  - Hepatic steatosis [Unknown]

NARRATIVE: CASE EVENT DATE: 20250201
